FAERS Safety Report 6258253-3 (Version None)
Quarter: 2009Q3

REPORT INFORMATION
  Report Type: 
  Country: None (occurrence: None)
  Receive Date: 20090707
  Receipt Date: 20090626
  Transmission Date: 20100115
  Serious: Yes (Death)
  Sender: FDA-Public Use
  Company Number: GB-BAYER-200911636BNE

PATIENT
  Sex: Female

DRUGS (1)
  1. MIRENA [Suspect]
     Indication: DRUG USE FOR UNKNOWN INDICATION
     Route: 015

REACTIONS (3)
  - ASPHYXIA [None]
  - COMPLETED SUICIDE [None]
  - DEPRESSION [None]
